FAERS Safety Report 24445498 (Version 1)
Quarter: 2024Q4

REPORT INFORMATION
  Report Type: Spontaneous
  Country: DE (occurrence: DE)
  Receive Date: 20241016
  Receipt Date: 20241016
  Transmission Date: 20250115
  Serious: Yes (Death, Other)
  Sender: UNKNOWN
  Company Number: DE-ADIENNEP-2024AD000788

PATIENT

DRUGS (3)
  1. BUSULFAN [Suspect]
     Active Substance: BUSULFAN
     Indication: Allogenic stem cell transplantation
     Dosage: 3,2 MG/KG/DAY FROM DAY -5 TO DAY -3
  2. THIOTEPA [Suspect]
     Active Substance: THIOTEPA
     Indication: Allogenic stem cell transplantation
     Dosage: 5 MG/KG/DAY FROM DAY -7 TO DAY -6
     Route: 065
  3. FLUDARABINE [Suspect]
     Active Substance: FLUDARABINE PHOSPHATE
     Indication: Allogenic stem cell transplantation
     Dosage: 30 MG/M2 D-5 TO D-3
     Route: 065

REACTIONS (1)
  - Pneumonia cytomegaloviral [Fatal]
